FAERS Safety Report 10222223 (Version 1)
Quarter: 2014Q2

REPORT INFORMATION
  Report Type: Report from Study
  Country: US (occurrence: US)
  Receive Date: 20140606
  Receipt Date: 20140606
  Transmission Date: 20141212
  Serious: Yes (Other)
  Sender: FDA-Public Use
  Company Number: US-SA-2014SA071329

PATIENT
  Sex: Female

DRUGS (2)
  1. LANTUS SOLOSTAR [Suspect]
     Indication: PRODUCT USED FOR UNKNOWN INDICATION
     Dosage: FOR 2 YEARS
     Route: 065
     Dates: start: 2012
  2. SOLOSTAR [Concomitant]
     Indication: DEVICE THERAPY

REACTIONS (1)
  - Dialysis [Unknown]
